FAERS Safety Report 6044793-9 (Version None)
Quarter: 2009Q1

REPORT INFORMATION
  Report Type: 
  Country: None (occurrence: None)
  Receive Date: 20090120
  Receipt Date: 20090113
  Transmission Date: 20090719
  Serious: Yes (Other)
  Sender: FDA-Public Use
  Company Number: FR-GILEAD-2009-0019841

PATIENT
  Sex: Male

DRUGS (4)
  1. TRUVADA [Suspect]
     Indication: HIV INFECTION
  2. REYATAZ [Concomitant]
  3. SOLIAN [Concomitant]
  4. ZOLOFT [Concomitant]
     Indication: DEPRESSION

REACTIONS (2)
  - NEPHROLITHIASIS [None]
  - RENAL COLIC [None]
